FAERS Safety Report 25203265 (Version 1)
Quarter: 2025Q2

REPORT INFORMATION
  Report Type: Spontaneous
  Country: TR (occurrence: TR)
  Receive Date: 20250416
  Receipt Date: 20250416
  Transmission Date: 20250717
  Serious: Yes (Other)
  Sender: OTSUKA
  Company Number: TR-MMM-Otsuka-2UL9QNEX

PATIENT
  Sex: Male

DRUGS (2)
  1. REXULTI [Suspect]
     Active Substance: BREXPIPRAZOLE
     Indication: Dementia Alzheimer^s type
     Dosage: 2 MG, QD (AROUND 19:30 IN THE EVENING)
     Route: 048
  2. REXULTI [Suspect]
     Active Substance: BREXPIPRAZOLE
     Indication: Agitation
     Dosage: 2 MG, BID (AROUND 19:30 IN THE EVENING AND AT 22:00)
     Route: 048

REACTIONS (3)
  - Delirium [Unknown]
  - Agitation [Unknown]
  - Inappropriate schedule of product administration [Unknown]
